FAERS Safety Report 8373223-7 (Version None)
Quarter: 2012Q2

REPORT INFORMATION
  Report Type: 
  Country: None (occurrence: None)
  Receive Date: 20120521
  Receipt Date: 20120515
  Transmission Date: 20120825
  Serious: Yes (Other)
  Sender: FDA-Public Use
  Company Number: US-BAYER-2012-049072

PATIENT
  Age: 26 Year
  Sex: Female
  Weight: 65.306 kg

DRUGS (2)
  1. IBUPROFEN [Concomitant]
     Dosage: 600 MG, EVERY 3-4 HOURS
     Route: 048
     Dates: start: 20070718
  2. YASMIN [Suspect]

REACTIONS (1)
  - PULMONARY EMBOLISM [None]
